FAERS Safety Report 19930143 (Version 2)
Quarter: 2021Q4

REPORT INFORMATION
  Report Type: Report from Study
  Country: US (occurrence: US)
  Receive Date: 20211008
  Receipt Date: 20211013
  Transmission Date: 20220303
  Serious: Yes (Other)
  Sender: FDA-Public Use
  Company Number: NVSC2021US226776

PATIENT
  Sex: Female
  Weight: 92.52 kg

DRUGS (9)
  1. COSENTYX [Suspect]
     Active Substance: SECUKINUMAB
     Indication: Psoriasis
     Dosage: 300 MG, QMO
     Route: 065
  2. COSENTYX [Suspect]
     Active Substance: SECUKINUMAB
     Dosage: UNK, QMO
     Route: 065
  3. GABAPENTIN [Suspect]
     Active Substance: GABAPENTIN
     Indication: Product used for unknown indication
     Dosage: UNK
     Route: 065
  4. FOLIC ACID [Concomitant]
     Active Substance: FOLIC ACID
     Indication: Product used for unknown indication
     Dosage: UNK, UNKNOWN
     Route: 065
  5. STELARA [Concomitant]
     Active Substance: USTEKINUMAB
     Indication: Psoriasis
     Dosage: 90 MG, (Q 12 WEEKS)
     Route: 065
     Dates: start: 20160806
  6. METHOTREXATE [Concomitant]
     Active Substance: METHOTREXATE
     Indication: Psoriasis
     Dosage: 7.5 MG, QW
     Route: 065
     Dates: start: 20160806, end: 20190822
  7. METHOTREXATE [Concomitant]
     Active Substance: METHOTREXATE
     Dosage: 12.5 MG, QW
     Route: 065
     Dates: start: 20200219
  8. TYLENOL [Concomitant]
     Active Substance: ACETAMINOPHEN
     Indication: Product used for unknown indication
     Dosage: UNK, UNKNOWN
     Route: 065
  9. CALCIPOTRIENE [Concomitant]
     Active Substance: CALCIPOTRIENE
     Indication: Psoriasis
     Dosage: UNK UNK, QD
     Route: 065

REACTIONS (3)
  - Breast cancer [Unknown]
  - Cellulitis [Unknown]
  - Tooth infection [Unknown]

NARRATIVE: CASE EVENT DATE: 20210501
